FAERS Safety Report 7465334-5 (Version None)
Quarter: 2011Q2

REPORT INFORMATION
  Report Type: 
  Country: None (occurrence: None)
  Receive Date: 20110505
  Receipt Date: 20110505
  Transmission Date: 20111010
  Serious: Yes (Other)
  Sender: FDA-Public Use
  Company Number: None

PATIENT
  Sex: Female
  Weight: 84 kg

DRUGS (1)
  1. LYRICA [Suspect]
     Dosage: 50 MG BID PO 3 DOSES
     Route: 048
     Dates: start: 20110429, end: 20110430

REACTIONS (2)
  - DIPLOPIA [None]
  - VISION BLURRED [None]
